FAERS Safety Report 5697257-6 (Version None)
Quarter: 2008Q2

REPORT INFORMATION
  Report Type: 
  Country: None (occurrence: None)
  Receive Date: 20080408
  Receipt Date: 20070809
  Transmission Date: 20081010
  Serious: No
  Sender: FDA-Public Use
  Company Number: US-BAYER-US-2007-030068

PATIENT
  Age: 21 Year
  Sex: Female
  Weight: 70 kg

DRUGS (4)
  1. YASMIN [Suspect]
     Indication: ORAL CONTRACEPTION
     Route: 048
     Dates: start: 20070701
  2. ANTIVERT ^PFIZER^ [Concomitant]
  3. DURADRIN [Concomitant]
  4. LEXAPRO [Concomitant]
     Dosage: UNIT DOSE: 20 MG

REACTIONS (3)
  - ANXIETY [None]
  - DEPRESSION [None]
  - NAUSEA [None]
